FAERS Safety Report 4359168-8 (Version None)
Quarter: 2004Q2

REPORT INFORMATION
  Report Type: 
  Country: None (occurrence: None)
  Receive Date: 20040517
  Receipt Date: 20040517
  Transmission Date: 20050107
  Serious: Yes (Hospitalization)
  Sender: FDA-Public Use
  Company Number: None

PATIENT
  Age: 84 Year
  Sex: Male

DRUGS (8)
  1. ASPIRIN [Suspect]
     Indication: PAIN
  2. NITROGLYCERIN [Concomitant]
  3. DILTIAZEM [Concomitant]
  4. HYDROCHLOROTHIAZIDE [Concomitant]
  5. LISINOPRIL [Concomitant]
  6. HYDROXYEA [Concomitant]
  7. RANITIDINE [Concomitant]
  8. TERAZOSIN HCL [Concomitant]

REACTIONS (2)
  - ANAEMIA [None]
  - FAECAL OCCULT BLOOD POSITIVE [None]
